FAERS Safety Report 4493851-9 (Version None)
Quarter: 2004Q4

REPORT INFORMATION
  Report Type: 
  Country: None (occurrence: None)
  Receive Date: 20041102
  Receipt Date: 20041021
  Transmission Date: 20050328
  Serious: Yes (Death, Hospitalization)
  Sender: FDA-Public Use
  Company Number: 200410509BFR

PATIENT
  Age: 51 Year
  Sex: Female

DRUGS (23)
  1. CIPROFLOXACIN HCL [Suspect]
     Indication: FEBRILE BONE MARROW APLASIA
     Dosage: SEE IMAGE
     Route: 048
     Dates: start: 20040101
  2. CIPROFLOXACIN HCL [Suspect]
     Indication: MUCOSAL INFLAMMATION
     Dosage: SEE IMAGE
     Route: 048
     Dates: start: 20040101
  3. CIPROFLOXACIN HCL [Suspect]
     Indication: PYREXIA
     Dosage: SEE IMAGE
     Route: 048
     Dates: start: 20040101
  4. CIPROFLOXACIN HCL [Suspect]
     Indication: FEBRILE BONE MARROW APLASIA
     Dosage: SEE IMAGE
     Route: 048
     Dates: start: 20040814
  5. CIPROFLOXACIN HCL [Suspect]
     Indication: MUCOSAL INFLAMMATION
     Dosage: SEE IMAGE
     Route: 048
     Dates: start: 20040814
  6. CIPROFLOXACIN HCL [Suspect]
     Indication: PYREXIA
     Dosage: SEE IMAGE
     Route: 048
     Dates: start: 20040814
  7. OROKEN (CEFIXIME) [Suspect]
     Indication: PYREXIA
     Dosage: ORAL
     Route: 048
     Dates: start: 20040814
  8. TIENAM [Suspect]
     Indication: FEBRILE BONE MARROW APLASIA
     Dosage: SEE IMAGE
     Route: 042
     Dates: end: 20040808
  9. TIENAM [Suspect]
     Indication: FEBRILE BONE MARROW APLASIA
     Dosage: SEE IMAGE
     Route: 042
     Dates: start: 20040906, end: 20040907
  10. CEFTAZIDIME [Suspect]
     Indication: FEBRILE BONE MARROW APLASIA
     Dates: start: 20040801
  11. LEVOTHYROX [Concomitant]
  12. OMEPRAZOLE [Concomitant]
  13. TRIFLUCAN [Concomitant]
  14. VALACYCLOVIR HCL [Concomitant]
  15. INNOHEP [Concomitant]
  16. VINCRISTINE [Concomitant]
  17. NOVANTRONE [Concomitant]
  18. ARACYTINE [Concomitant]
  19. DAUNORUBICINE [Concomitant]
  20. AMBISOME [Concomitant]
  21. VANCOMYCIN [Concomitant]
  22. TAVANIC [Concomitant]
  23. ORGAMETRIL [Concomitant]

REACTIONS (16)
  - ASTHENIA [None]
  - CATHETER RELATED INFECTION [None]
  - DERMATITIS EXFOLIATIVE [None]
  - DIARRHOEA [None]
  - FAECES DISCOLOURED [None]
  - GASTROINTESTINAL DISORDER [None]
  - GENERAL PHYSICAL HEALTH DETERIORATION [None]
  - HEPATIC FAILURE [None]
  - HYPERSENSITIVITY [None]
  - HYPOTENSION [None]
  - JAUNDICE [None]
  - MULTI-ORGAN FAILURE [None]
  - PHLEBOTHROMBOSIS [None]
  - PSEUDOMONAS INFECTION [None]
  - RENAL FAILURE ACUTE [None]
  - SHOCK [None]
